FAERS Safety Report 13284112 (Version 2)
Quarter: 2017Q1

REPORT INFORMATION
  Report Type: Spontaneous
  Country: FI (occurrence: FI)
  Receive Date: 20170301
  Receipt Date: 20170327
  Transmission Date: 20170428
  Serious: Yes (Life-Threatening)
  Sender: FDA-Public Use
  Company Number: FI-PFIZER INC-2017089373

PATIENT
  Age: 67 Year
  Sex: Male

DRUGS (18)
  1. DOCETAXEL ACCORD [Interacting]
     Active Substance: DOCETAXEL
     Indication: THYROID CANCER
     Dosage: 20 MG, UNK
     Route: 042
     Dates: start: 20161214, end: 20161228
  2. BENFOTIAMIN [Concomitant]
     Dosage: 0.6 G, 1X/DAY
  3. LUMIGAN [Concomitant]
     Active Substance: BIMATOPROST
     Dosage: 1 GTT, TO BOTH EYES
  4. VITAMIN B12 [Concomitant]
     Active Substance: CYANOCOBALAMIN
     Dosage: 2 MG, DAILY
  5. MAGNESIA [Concomitant]
     Active Substance: MAGNESIUM HYDROXIDE
     Dosage: 375 MG, 1X/DAY
  6. SIMVASTATIN. [Concomitant]
     Active Substance: SIMVASTATIN
     Dosage: 20 MG, 1X/DAY
  7. NEXIUM [Concomitant]
     Active Substance: ESOMEPRAZOLE MAGNESIUM
     Dosage: 20 MG, 1X/DAY
  8. AZOPT [Concomitant]
     Active Substance: BRINZOLAMIDE
     Dosage: 2 GTT, TO BOTH EYES
  9. TRADOLAN [Concomitant]
     Active Substance: TRAMADOL
     Dosage: UNK, AS NEEDED
  10. DEXAMETASON /00016001/ [Concomitant]
     Dosage: 1.5 MG, IN THE MORNING
     Route: 048
     Dates: start: 20161214
  11. CANDESARTAN [Concomitant]
     Active Substance: CANDESARTAN
     Dosage: 4 MG, 1X/DAY
  12. REFORMI IMMUNO ZINK [Concomitant]
     Dosage: UNK
  13. DIFLUCAN [Suspect]
     Active Substance: FLUCONAZOLE
     Indication: ORAL CANDIDIASIS
     Dosage: 150 MG, SINGLE
     Route: 048
     Dates: start: 20161227, end: 20161227
  14. ARCOXIA [Concomitant]
     Active Substance: ETORICOXIB
     Dosage: 60 MG, UNK
  15. HUMALOG [Concomitant]
     Active Substance: INSULIN LISPRO
     Dosage: 50 IU, DAILY
  16. THYROXIN [Concomitant]
     Active Substance: LEVOTHYROXINE
     Dosage: 0.1 MG, 1X/DAY
  17. CREON [Concomitant]
     Active Substance: PANCRELIPASE AMYLASE\PANCRELIPASE LIPASE\PANCRELIPASE PROTEASE
     Dosage: 25000, ^ABOUT 3 DAY^
  18. L-ARGININE [Concomitant]
     Active Substance: ARGININE
     Dosage: 1 G, 1X/DAY

REACTIONS (3)
  - Cardiac arrest [Recovered/Resolved]
  - Bronchospasm [Recovered/Resolved]
  - Drug interaction [Recovered/Resolved]

NARRATIVE: CASE EVENT DATE: 20161228
